FAERS Safety Report 5762057-5 (Version None)
Quarter: 2008Q2

REPORT INFORMATION
  Report Type: 
  Country: None (occurrence: None)
  Receive Date: 20080604
  Receipt Date: 20080519
  Transmission Date: 20081010
  Serious: Yes (Hospitalization)
  Sender: FDA-Public Use
  Company Number: 002#2#2008-00439

PATIENT
  Age: 81 Year
  Sex: Male
  Weight: 57.6068 kg

DRUGS (7)
  1. NEUPRO [Suspect]
     Indication: PARKINSON'S DISEASE
     Dosage: 2MG/24H, 1 IN 1 D, TRANSDERMAL
     Route: 062
     Dates: start: 20080101
  2. SINEMET [Concomitant]
  3. ARICEPT [Concomitant]
  4. ZOLOFT [Concomitant]
  5. ASPIRIN [Concomitant]
  6. CELEBREX [Concomitant]
  7. SEROQUEL [Concomitant]

REACTIONS (3)
  - FALL [None]
  - LACERATION [None]
  - PHARMACEUTICAL PRODUCT COMPLAINT [None]
